FAERS Safety Report 7865392-X (Version None)
Quarter: 2011Q4

REPORT INFORMATION
  Report Type: 
  Country: None (occurrence: None)
  Receive Date: 20111028
  Receipt Date: 20101207
  Transmission Date: 20120403
  Serious: No
  Sender: FDA-Public Use
  Company Number: US-GLAXOSMITHKLINE-A0899383A

PATIENT
  Age: 81 Year
  Sex: Male

DRUGS (20)
  1. ADVAIR DISKUS 100/50 [Suspect]
     Indication: PRODUCT USED FOR UNKNOWN INDICATION
     Route: 055
     Dates: start: 20100101
  2. FLOVENT [Suspect]
     Indication: PRODUCT USED FOR UNKNOWN INDICATION
     Dosage: 110MCG UNKNOWN
     Route: 055
     Dates: start: 20100101
  3. LISINOPRIL [Concomitant]
  4. METFORMIN HCL [Concomitant]
  5. SIMVASTATIN [Concomitant]
  6. OXYGEN [Concomitant]
  7. ATROVENT [Concomitant]
  8. GLIPIZIDE [Concomitant]
  9. LEVOTHYROXINE SODIUM [Concomitant]
  10. VENTOLIN HFA [Suspect]
     Indication: PRODUCT USED FOR UNKNOWN INDICATION
     Dosage: 90MCG UNKNOWN
     Route: 055
     Dates: start: 20100101
  11. DILTIAZEM HCL [Concomitant]
  12. PROAIR HFA [Concomitant]
  13. AVODART [Suspect]
     Indication: PRODUCT USED FOR UNKNOWN INDICATION
     Route: 048
     Dates: start: 20100101
  14. FUROSEMIDE [Concomitant]
  15. C-PAP [Concomitant]
  16. FORADIL [Concomitant]
  17. WARFARIN SODIUM [Concomitant]
  18. OMEPRAZOLE [Concomitant]
  19. IPRATROPIUM BROMIDE [Concomitant]
  20. CAPISETTE [Concomitant]

REACTIONS (1)
  - NASOPHARYNGITIS [None]
